FAERS Safety Report 9149864 (Version 3)
Quarter: 2013Q2

REPORT INFORMATION
  Report Type: Spontaneous
  Country: JP (occurrence: None)
  Receive Date: 20130131
  Receipt Date: 20130521
  Transmission Date: 20140414
  Serious: Yes (Other)
  Sender: FDA-Public Use
  Company Number: TCI2013A00237

PATIENT
  Age: 71 Year
  Sex: Female

DRUGS (3)
  1. LANSOPRAZOLE (LANSOPRAZOLE) [Suspect]
     Indication: GASTROOESOPHAGEAL REFLUX DISEASE
     Dosage: 30 MG, 1 IN 1 D, ORAL
     Route: 048
     Dates: start: 20120309, end: 20130325
  2. TAK-438 [Suspect]
     Indication: GASTROOESOPHAGEAL REFLUX DISEASE
     Dosage: 10 OR 20 MG (1 IN 1 D)
     Route: 048
     Dates: start: 20120326, end: 20130124
  3. AMLODIPINE [Concomitant]

REACTIONS (3)
  - Breast cancer [None]
  - Invasive ductal breast carcinoma [None]
  - Breast cancer female [None]
